FAERS Safety Report 20511615 (Version 1)
Quarter: 2022Q1

REPORT INFORMATION
  Report Type: Spontaneous
  Country: US (occurrence: None)
  Receive Date: 20220223
  Receipt Date: 20220223
  Transmission Date: 20220423
  Serious: Yes (Other)
  Sender: FDA-Public Use
  Company Number: None

PATIENT
  Age: 51 Year
  Sex: Male

DRUGS (8)
  1. ACTHAR [Suspect]
     Active Substance: CORTICOTROPIN
     Indication: Dermatomyositis
     Dosage: OTHER FREQUENCY : TWICE WEEKLY;?
     Route: 058
     Dates: start: 20210902, end: 20220223
  2. HYDROXYCHLOROQUINE [Concomitant]
     Active Substance: HYDROXYCHLOROQUINE
  3. METHOTREXATE (METHOTREXATE SODIUM) [Concomitant]
     Active Substance: METHOTREXATE SODIUM
  4. FOLIC ACID [Concomitant]
     Active Substance: FOLIC ACID
  5. PREDNISONE [Concomitant]
  6. DOXEPIN [Concomitant]
     Active Substance: DOXEPIN
  7. DIAZEPAM [Concomitant]
     Active Substance: DIAZEPAM
  8. DULOXETINE [Concomitant]
     Active Substance: DULOXETINE

REACTIONS (1)
  - Drug ineffective [None]

NARRATIVE: CASE EVENT DATE: 20220223
